FAERS Safety Report 4421257-7 (Version None)
Quarter: 2004Q3

REPORT INFORMATION
  Report Type: 
  Country: None (occurrence: None)
  Receive Date: 20040804
  Receipt Date: 20040723
  Transmission Date: 20050211
  Serious: Yes (Other)
  Sender: FDA-Public Use
  Company Number: 208018

PATIENT
  Age: 20 Year
  Sex: Female

DRUGS (2)
  1. RITUXAN [Suspect]
     Indication: IMMUNOSUPPRESSANT DRUG THERAPY
     Dosage: 375 MG/M2, SINGLE, INTRAVENOUS
     Route: 042
     Dates: start: 20040622, end: 20040622
  2. RITUXAN [Suspect]
     Indication: IMMUNOSUPPRESSANT DRUG THERAPY
     Dosage: 375 MG/M2, SINGLE, INTRAVENOUS
     Route: 042
     Dates: start: 20040628, end: 20040628

REACTIONS (4)
  - BLOOD URIC ACID INCREASED [None]
  - GASTROINTESTINAL OEDEMA [None]
  - PLATELET COUNT DECREASED [None]
  - WHITE BLOOD CELL COUNT DECREASED [None]
